FAERS Safety Report 15539029 (Version 2)
Quarter: 2018Q4

REPORT INFORMATION
  Report Type: Spontaneous
  Country: TW (occurrence: TW)
  Receive Date: 20181022
  Receipt Date: 20181120
  Transmission Date: 20190205
  Serious: Yes (Other)
  Sender: FDA-Public Use
  Company Number: TW-PFIZER INC-2018377114

PATIENT
  Age: 64 Year
  Sex: Male

DRUGS (2)
  1. MORPHINE [Concomitant]
     Active Substance: MORPHINE
     Indication: ANALGESIC THERAPY
     Dosage: UNK
  2. INLYTA [Suspect]
     Active Substance: AXITINIB
     Indication: RENAL CELL CARCINOMA
     Dosage: 5 MG, BID
     Route: 048
     Dates: start: 20180912

REACTIONS (4)
  - Constipation [Recovered/Resolved]
  - Palmar-plantar erythrodysaesthesia syndrome [Recovered/Resolved]
  - Decreased appetite [Recovered/Resolved]
  - Cancer pain [Recovered/Resolved]

NARRATIVE: CASE EVENT DATE: 201809
